FAERS Safety Report 13014649 (Version 4)
Quarter: 2018Q3

REPORT INFORMATION
  Report Type: Spontaneous
  Country: US (occurrence: US)
  Receive Date: 20161209
  Receipt Date: 20180802
  Transmission Date: 20181010
  Serious: Yes (Death, Hospitalization, Other)
  Sender: FDA-Public Use
  Company Number: US-PFIZER INC-2016513166

PATIENT
  Age: 81 Year
  Sex: Female
  Weight: 46 kg

DRUGS (9)
  1. EXEMESTANE. [Concomitant]
     Active Substance: EXEMESTANE
     Dosage: UNK
  2. PROTONIX [Concomitant]
     Active Substance: PANTOPRAZOLE SODIUM
     Dosage: 40 MG, DAILY
     Route: 048
  3. TIMOLOL MALEATE. [Concomitant]
     Active Substance: TIMOLOL MALEATE
     Dosage: 0.5 %, (AS DIRECTED)
     Route: 047
  4. IBRANCE [Suspect]
     Active Substance: PALBOCICLIB
     Dosage: 125 MG, 1X/DAY
  5. XALATAN [Concomitant]
     Active Substance: LATANOPROST
     Dosage: 0.005 %, 1X/DAY (QHS)
     Route: 047
  6. OXYCODONE [Concomitant]
     Active Substance: OXYCODONE
     Indication: BLOOD PRESSURE MANAGEMENT
     Dosage: UNK
  7. IBRANCE [Suspect]
     Active Substance: PALBOCICLIB
     Indication: BREAST CANCER METASTATIC
     Dosage: 125 MG, CYCLIC (DAILY X 3 WEEKS FOLLOWED BY 1 WEEK BREAK)
     Route: 048
     Dates: start: 20161007
  8. PREDNISONE. [Concomitant]
     Active Substance: PREDNISONE
     Dosage: 10 MG, ALTERNATE DAY (EVERY OTHER DAY)
     Route: 048
     Dates: start: 20140912
  9. LOTREL [Concomitant]
     Active Substance: AMLODIPINE BESYLATE\BENAZEPRIL HYDROCHLORIDE
     Indication: BLOOD PRESSURE MANAGEMENT
     Dosage: UNK UNK, DAILY (AMLODIPINE BESYLATE?2.5MG, BENAZEPRIL HYDROCHLORIDE?10MG)
     Route: 048
     Dates: start: 20101014

REACTIONS (8)
  - Urinary tract infection [Unknown]
  - Neoplasm progression [Not Recovered/Not Resolved]
  - Product use in unapproved indication [Unknown]
  - Death [Fatal]
  - Epistaxis [Unknown]
  - Fall [Unknown]
  - Weight decreased [Unknown]
  - Humerus fracture [Recovered/Resolved]

NARRATIVE: CASE EVENT DATE: 20161007
